FAERS Safety Report 8778549 (Version 5)
Quarter: 2013Q1

REPORT INFORMATION
  Report Type: Spontaneous
  Country: US (occurrence: US)
  Receive Date: 20120912
  Receipt Date: 20130220
  Transmission Date: 20140127
  Serious: Yes (Hospitalization)
  Sender: FDA-Public Use
  Company Number: US-ASTRAZENECA-2012SE64676

PATIENT
  Age: 54 Year
  Sex: Female

DRUGS (1)
  1. NEXIUM [Suspect]
     Indication: GASTROOESOPHAGEAL REFLUX DISEASE
     Route: 048
     Dates: start: 20120807

REACTIONS (8)
  - Gastrooesophageal reflux disease [Unknown]
  - Dysphagia [Recovering/Resolving]
  - Oesophageal food impaction [Unknown]
  - Hyperchlorhydria [Unknown]
  - Chest pain [Unknown]
  - Vomiting [Unknown]
  - Therapeutic response unexpected [Unknown]
  - Drug dose omission [Unknown]
